FAERS Safety Report 5108610-3 (Version None)
Quarter: 2006Q3

REPORT INFORMATION
  Report Type: 
  Country: None (occurrence: None)
  Receive Date: 20060915
  Receipt Date: 20060901
  Transmission Date: 20061208
  Serious: Yes (Hospitalization)
  Sender: FDA-Public Use
  Company Number: 228788

PATIENT
  Age: 62 Year
  Sex: 0

DRUGS (5)
  1. MABTHERA (RITUXIMAB)CONC FOR SOLUTION FOR INFUSION [Suspect]
     Indication: NON-HODGKIN'S LYMPHOMA
  2. CISPLATIN [Suspect]
     Indication: LYMPHOMA
  3. CYTARABINE [Suspect]
     Indication: LYMPHOMA
  4. DEXAMETHASONE TAB [Suspect]
     Indication: DRUG USE FOR UNKNOWN INDICATION
  5. LENOGRASTIM (LENOGRASTIM) [Suspect]
     Indication: LYMPHOMA

REACTIONS (1)
  - PNEUMOCYSTIS JIROVECI PNEUMONIA [None]
